FAERS Safety Report 5108575-4 (Version None)
Quarter: 2006Q3

REPORT INFORMATION
  Report Type: 
  Country: None (occurrence: None)
  Receive Date: 20060919
  Receipt Date: 20060913
  Transmission Date: 20061208
  Serious: Yes (Other)
  Sender: FDA-Public Use
  Company Number: JP-MERCK-0609USA02962

PATIENT

DRUGS (2)
  1. PEPCID [Suspect]
     Route: 048
  2. PITRESSIN [Suspect]
     Route: 065

REACTIONS (1)
  - RHABDOMYOLYSIS [None]
